FAERS Safety Report 8236937-5 (Version None)
Quarter: 2012Q1

REPORT INFORMATION
  Report Type: 
  Country: None (occurrence: None)
  Receive Date: 20120327
  Receipt Date: 20120316
  Transmission Date: 20120608
  Serious: Yes (Hospitalization)
  Sender: FDA-Public Use
  Company Number: PHHY2012DE019640

PATIENT
  Sex: Male
  Weight: 90 kg

DRUGS (12)
  1. ZYTIKA [Concomitant]
     Dosage: 250 MG PER DAY
     Dates: start: 20110926
  2. ZOMETA [Suspect]
     Dosage: 4 MG, UNK
     Route: 042
     Dates: start: 20110926
  3. JEVTANA KIT [Concomitant]
     Dosage: 25 MG/M2, BW, 2 CYCLES
     Dates: start: 20110707
  4. LORZAAR [Concomitant]
     Dosage: 1 DF, UNK
     Dates: start: 20010101
  5. ANTINEOPLASTIC AGENTS [Concomitant]
  6. VITAMIN D [Concomitant]
  7. ACE INHIBITORS [Concomitant]
  8. ZOMETA [Suspect]
     Indication: BONE DISORDER
     Dosage: 4 MG, UNK
     Route: 042
     Dates: start: 20110228
  9. DEGARELIX [Concomitant]
     Dates: start: 20100409
  10. CALCIUM CARBONATE [Concomitant]
     Dosage: 500 MG DAILY
  11. DEXAMETHASONE [Concomitant]
     Dosage: 8 MG, UNK
     Dates: start: 20110926
  12. ZOMETA [Suspect]
     Dosage: 4 MG, UNK
     Route: 042

REACTIONS (13)
  - URINE OUTPUT DECREASED [None]
  - DEHYDRATION [None]
  - PYONEPHROSIS [None]
  - FLANK PAIN [None]
  - URINARY RETENTION [None]
  - NEOPLASM [None]
  - PYREXIA [None]
  - ANAEMIA [None]
  - DYSURIA [None]
  - URINARY TRACT DISORDER [None]
  - GENERAL PHYSICAL CONDITION ABNORMAL [None]
  - INFECTION [None]
  - LETHARGY [None]
